FAERS Safety Report 4619297-8 (Version None)
Quarter: 2005Q2

REPORT INFORMATION
  Report Type: 
  Country: None (occurrence: None)
  Receive Date: 20050321
  Receipt Date: 20040213
  Transmission Date: 20051028
  Serious: Yes (Other)
  Sender: FDA-Public Use
  Company Number: 2004-02-1010

PATIENT
  Age: 23 Year
  Sex: Female
  Weight: 82.1011 kg

DRUGS (5)
  1. PEG-INTRON [Suspect]
     Indication: HEPATITIS C
     Dosage: 120 MCG QWK SUBCUTANEOUS
     Route: 058
     Dates: start: 20030812, end: 20031008
  2. REBETOL [Suspect]
     Indication: HEPATITIS C
     Dosage: 1000 MG QD ORAL
     Route: 048
     Dates: start: 20030812, end: 20031008
  3. EFFEXOR [Concomitant]
  4. RISPERDAL [Concomitant]
  5. PRENATAL VITAMINS [Concomitant]

REACTIONS (10)
  - ABNORMAL DREAMS [None]
  - DECREASED APPETITE [None]
  - DEPRESSION [None]
  - FATIGUE [None]
  - HALLUCINATION, AUDITORY [None]
  - HALLUCINATION, VISUAL [None]
  - HOMICIDAL IDEATION [None]
  - HYPERSOMNIA [None]
  - IRRITABILITY [None]
  - PARANOIA [None]
